FAERS Safety Report 8364931-2 (Version None)
Quarter: 2012Q2

REPORT INFORMATION
  Report Type: 
  Country: None (occurrence: None)
  Receive Date: 20120514
  Receipt Date: 20120504
  Transmission Date: 20120825
  Serious: Yes (Hospitalization, Other)
  Sender: FDA-Public Use
  Company Number: GER/GER/12/0024239

PATIENT
  Sex: Male

DRUGS (4)
  1. FOLSAURE (FOLIC ACID) [Concomitant]
  2. BETAMETHASONE [Concomitant]
  3. SERTRALINE HYDROCHLORIDE [Suspect]
     Indication: PRODUCT USED FOR UNKNOWN INDICATION
     Dosage: 100 MG, 1 I N1 D, TRANSPLACENTAL
     Route: 064
     Dates: start: 20110816, end: 20110930
  4. SERTRALINE HYDROCHLORIDE [Suspect]
     Indication: PRODUCT USED FOR UNKNOWN INDICATION
     Dosage: 100 MG, 1 I N1 D, TRANSPLACENTAL
     Route: 064
     Dates: start: 20110331, end: 20110816

REACTIONS (4)
  - PREMATURE BABY [None]
  - MATERNAL DRUGS AFFECTING FOETUS [None]
  - CAESAREAN SECTION [None]
  - TWIN PREGNANCY [None]
